FAERS Safety Report 20690420 (Version 1)
Quarter: 2022Q2

REPORT INFORMATION
  Report Type: Spontaneous
  Country: PL (occurrence: None)
  Receive Date: 20220408
  Receipt Date: 20220408
  Transmission Date: 20220720
  Serious: Yes (Other)
  Sender: FDA-Public Use
  Company Number: 2022A133183

PATIENT
  Age: 66 Year
  Sex: Female

DRUGS (3)
  1. FULVESTRANT [Suspect]
     Active Substance: FULVESTRANT
     Indication: Breast cancer
     Dosage: UNK
     Route: 065
     Dates: start: 20210407
  2. KISQALI [Suspect]
     Active Substance: RIBOCICLIB
     Indication: Breast cancer
     Dosage: 400 MG, QD(2 TABLETS, 200 MG EACH FOR 21 DAYS + 7 DAYS OFF)
     Route: 065
     Dates: start: 20211130
  3. KISQALI [Suspect]
     Active Substance: RIBOCICLIB
     Indication: Breast cancer
     Dosage: 600 MG(FOR 21 DAYS AND 7 DAYS OFF)
     Route: 065
     Dates: start: 20210407

REACTIONS (15)
  - Metastases to skin [Unknown]
  - Metastases to bone [Unknown]
  - Neutropenia [Recovered/Resolved]
  - Leukopenia [Unknown]
  - Constipation [Unknown]
  - Liver function test abnormal [Unknown]
  - Alopecia [Unknown]
  - Infection [Unknown]
  - Cough [Unknown]
  - Headache [Unknown]
  - Fatigue [Unknown]
  - Diarrhoea [Unknown]
  - Rash [Unknown]
  - Vomiting [Unknown]
  - Nausea [Unknown]

NARRATIVE: CASE EVENT DATE: 20210407
